FAERS Safety Report 7019110-8 (Version None)
Quarter: 2010Q3

REPORT INFORMATION
  Report Type: 
  Country: None (occurrence: None)
  Receive Date: 20100928
  Receipt Date: 20100921
  Transmission Date: 20110219
  Serious: Yes (Hospitalization)
  Sender: FDA-Public Use
  Company Number: A0883632A

PATIENT
  Age: 51 Year
  Sex: Female
  Weight: 117.7 kg

DRUGS (5)
  1. AVANDIA [Suspect]
     Route: 065
     Dates: start: 20030405, end: 20030525
  2. ASPIRIN [Concomitant]
     Dosage: 81MG PER DAY
  3. ESTRADIOL [Concomitant]
     Dosage: .5MG PER DAY
  4. TYLENOL [Concomitant]
     Dosage: 300MG PER DAY
  5. CENTRUM VITAMINS [Concomitant]
     Dosage: 1TAB PER DAY

REACTIONS (8)
  - BLOOD GLUCOSE DECREASED [None]
  - CEREBROVASCULAR ACCIDENT [None]
  - DECREASED APPETITE [None]
  - DIZZINESS [None]
  - DRUG HYPERSENSITIVITY [None]
  - FATIGUE [None]
  - HYPERHIDROSIS [None]
  - INFLUENZA LIKE ILLNESS [None]
